FAERS Safety Report 9993386 (Version 7)
Quarter: 2014Q4

REPORT INFORMATION
  Report Type: Spontaneous
  Country: US (occurrence: US)
  Receive Date: 20140310
  Receipt Date: 20141202
  Transmission Date: 20150529
  Serious: Yes (Hospitalization)
  Sender: FDA-Public Use
  Company Number: US-009507513-1202USA00553

PATIENT
  Sex: Male
  Weight: 88.89 kg

DRUGS (5)
  1. PROPECIA [Suspect]
     Active Substance: FINASTERIDE
     Indication: ANDROGENETIC ALOPECIA
     Dosage: 1 MG, QD
     Route: 048
     Dates: start: 19980312, end: 2000
  2. MENS ROGAINE UNSCENTED FORMULA [Concomitant]
     Active Substance: MINOXIDIL
     Route: 061
  3. PROPECIA [Suspect]
     Active Substance: FINASTERIDE
     Dosage: 1 MG, QD
     Route: 048
     Dates: start: 20081125, end: 201103
  4. PROPECIA [Suspect]
     Active Substance: FINASTERIDE
     Dosage: 1 MG, QD
     Route: 048
     Dates: start: 20050420, end: 20060520
  5. PROPECIA [Suspect]
     Active Substance: FINASTERIDE
     Dosage: 1 MG, QD
     Route: 048
     Dates: start: 200006

REACTIONS (25)
  - Breast tenderness [Not Recovered/Not Resolved]
  - Semen volume decreased [Not Recovered/Not Resolved]
  - Umbilical hernia [Unknown]
  - Inappropriate schedule of drug administration [Unknown]
  - Sexual dysfunction [Not Recovered/Not Resolved]
  - Peyronie^s disease [Unknown]
  - Dizziness [Unknown]
  - Blunted affect [Unknown]
  - Umbilical hernia repair [Unknown]
  - Spinal pain [Not Recovered/Not Resolved]
  - Epicondylitis [Unknown]
  - Lumbar radiculopathy [Unknown]
  - Cervical spinal stenosis [Unknown]
  - Lumbar spinal stenosis [Unknown]
  - Libido decreased [Unknown]
  - Dizziness [Recovering/Resolving]
  - Erectile dysfunction [Not Recovered/Not Resolved]
  - Mental impairment [Unknown]
  - Benign prostatic hyperplasia [Unknown]
  - Genital hypoaesthesia [Not Recovered/Not Resolved]
  - Anxiety [Not Recovered/Not Resolved]
  - Presyncope [Unknown]
  - Hypertension [Unknown]
  - Cognitive disorder [Not Recovered/Not Resolved]
  - Blood pressure increased [Unknown]

NARRATIVE: CASE EVENT DATE: 1998
